FAERS Safety Report 18957379 (Version 1)
Quarter: 2021Q1

REPORT INFORMATION
  Report Type: Spontaneous
  Country: US (occurrence: US)
  Receive Date: 20210302
  Receipt Date: 20210302
  Transmission Date: 20210420
  Serious: Yes (Death)
  Sender: FDA-Public Use
  Company Number: US-ROCHE-2779777

PATIENT
  Age: 81 Year
  Sex: Female

DRUGS (11)
  1. FISH OIL [Concomitant]
     Active Substance: FISH OIL
  2. LORAZEPAM. [Concomitant]
     Active Substance: LORAZEPAM
  3. LISINOPRIL. [Concomitant]
     Active Substance: LISINOPRIL
  4. FLUOXETINE HCL [Concomitant]
     Active Substance: FLUOXETINE HYDROCHLORIDE
  5. ASPIRIN. [Concomitant]
     Active Substance: ASPIRIN
  6. ESBRIET [Suspect]
     Active Substance: PIRFENIDONE
     Indication: PULMONARY ARTERIAL HYPERTENSION
     Dosage: WITH MEAL
     Route: 048
  7. CLONIDINE HCL [Concomitant]
     Active Substance: CLONIDINE HYDROCHLORIDE
  8. FUROSEMIDE. [Concomitant]
     Active Substance: FUROSEMIDE
  9. SIMVASTATIN. [Concomitant]
     Active Substance: SIMVASTATIN
  10. SYMBICORT [Concomitant]
     Active Substance: BUDESONIDE\FORMOTEROL FUMARATE DIHYDRATE
     Dosage: AER 160?4.5 MCG
  11. BUSPIRONE HCL [Concomitant]
     Active Substance: BUSPIRONE HYDROCHLORIDE

REACTIONS (1)
  - Death [Fatal]

NARRATIVE: CASE EVENT DATE: 20210213
